FAERS Safety Report 5572286-1 (Version None)
Quarter: 2007Q4

REPORT INFORMATION
  Report Type: 
  Country: None (occurrence: None)
  Receive Date: 20071221
  Receipt Date: 20071214
  Transmission Date: 20080405
  Serious: Yes (Other)
  Sender: FDA-Public Use
  Company Number: US-GENENTECH-252862

PATIENT
  Age: 79 Year
  Sex: Female

DRUGS (18)
  1. BEVACIZUMAB [Suspect]
     Indication: METASTATIC RENAL CELL CARCINOMA
     Dosage: 10 MG/KG, Q2W
     Route: 042
     Dates: start: 20070621, end: 20070621
  2. BEVACIZUMAB [Suspect]
     Dosage: 10 MG/KG, Q2W
     Route: 042
     Dates: start: 20070705, end: 20070705
  3. BEVACIZUMAB [Suspect]
     Dosage: 10 MG/KG, Q2W
     Route: 042
     Dates: start: 20070720, end: 20070720
  4. BEVACIZUMAB [Suspect]
     Dosage: 5 MG/KG, Q2W
     Route: 042
     Dates: start: 20070809, end: 20070809
  5. BEVACIZUMAB [Suspect]
     Dosage: 5 MG/KG, Q2W
     Route: 042
     Dates: start: 20070823, end: 20070823
  6. SU11248 [Suspect]
     Indication: METASTATIC RENAL CELL CARCINOMA
     Dosage: 50 MG, UNK
     Route: 048
     Dates: start: 20070622, end: 20070719
  7. SU11248 [Suspect]
     Dosage: 37.5 MG, UNK
     Route: 048
     Dates: start: 20070810, end: 20070827
  8. ACETAMINOPHEN [Concomitant]
     Indication: DRUG USE FOR UNKNOWN INDICATION
  9. ALPRAZOLAM [Concomitant]
     Indication: ANXIETY
  10. PROPRANOLOL [Concomitant]
     Indication: TREMOR
     Dosage: 40 MG, UNK
  11. FUROSEMIDE [Concomitant]
     Indication: OEDEMA
     Dosage: 20 MG, UNK
  12. VITAMIN CAP [Concomitant]
     Indication: DRUG USE FOR UNKNOWN INDICATION
  13. AMLODIPINE [Concomitant]
     Indication: HYPERTENSION
     Dosage: 10 MG, UNK
  14. AMLODIPINE [Concomitant]
     Dosage: 5 MG, UNK
  15. CETIRIZINE HCL [Concomitant]
     Indication: HYPERSENSITIVITY
  16. FELODIPINE [Concomitant]
     Indication: HYPERTENSION
     Dosage: 5 MG, UNK
  17. BENAZEPRIL HYDROCHLORIDE [Concomitant]
     Indication: HYPERTENSION
     Dosage: 10 MG, UNK
  18. HEPARIN [Concomitant]
     Indication: DRUG USE FOR UNKNOWN INDICATION

REACTIONS (1)
  - THROMBOTIC MICROANGIOPATHY [None]
